FAERS Safety Report 8097653-6 (Version None)
Quarter: 2012Q1

REPORT INFORMATION
  Report Type: 
  Country: None (occurrence: None)
  Receive Date: 20120128
  Receipt Date: 20110701
  Transmission Date: 20120608
  Serious: No
  Sender: FDA-Public Use
  Company Number: US-ABBOTT-11P-163-0836492-00

PATIENT
  Sex: Female
  Weight: 56.75 kg

DRUGS (2)
  1. HUMIRA [Suspect]
     Indication: RHEUMATOID ARTHRITIS
     Dates: start: 20110301
  2. OMNARIS [Concomitant]
     Indication: SINUS CONGESTION
     Dates: start: 20110101

REACTIONS (3)
  - NASAL CONGESTION [None]
  - ILL-DEFINED DISORDER [None]
  - SINUS CONGESTION [None]
